FAERS Safety Report 25172505 (Version 1)
Quarter: 2025Q2

REPORT INFORMATION
  Report Type: Spontaneous
  Country: US (occurrence: None)
  Receive Date: 20250407
  Receipt Date: 20250407
  Transmission Date: 20250717
  Serious: Yes (Disabling)
  Sender: FDA-CTU
  Company Number: None

PATIENT
  Age: 74 Year
  Sex: Female
  Weight: 61.2 kg

DRUGS (14)
  1. PERFLUTREN [Suspect]
     Active Substance: PERFLUTREN
     Indication: Ultrasound scan
     Route: 042
     Dates: start: 20240416, end: 20240416
  2. LATANOPROST [Concomitant]
     Active Substance: LATANOPROST
  3. SOTALOL [Concomitant]
     Active Substance: SOTALOL
  4. LOSARTAN [Concomitant]
     Active Substance: LOSARTAN
  5. FUROSEMIDE [Concomitant]
     Active Substance: FUROSEMIDE
  6. ESTRADIOL [Concomitant]
     Active Substance: ESTRADIOL
  7. ELIQUIS [Concomitant]
     Active Substance: APIXABAN
  8. FISH OIL [Concomitant]
     Active Substance: FISH OIL
  9. ASPIRIN [Concomitant]
     Active Substance: ASPIRIN
  10. VITAMIN D3 [Concomitant]
     Active Substance: CHOLECALCIFEROL
  11. B12 [Concomitant]
  12. VITAMIN B COMPLEX [Concomitant]
     Active Substance: CYANOCOBALAMIN\DEXPANTHENOL\NIACINAMIDE\PYRIDOXINE HYDROCHLORIDE\RIBOFLAVIN 5^-PHOSPHATE SODIUM\THIA
  13. MAGNESIUM GLUCONATE [Concomitant]
     Active Substance: MAGNESIUM GLUCONATE
  14. DIETARY SUPPLEMENT [Concomitant]
     Active Substance: DIETARY SUPPLEMENT

REACTIONS (11)
  - Chest pain [None]
  - Dizziness [None]
  - Pain [None]
  - Diarrhoea [None]
  - Pain [None]
  - Excessive cerumen production [None]
  - Foreign body sensation in eyes [None]
  - Swollen tongue [None]
  - Alopecia [None]
  - Toothache [None]
  - Gingival pain [None]

NARRATIVE: CASE EVENT DATE: 20240416
